FAERS Safety Report 13011425 (Version 1)
Quarter: 2016Q4

REPORT INFORMATION
  Report Type: Spontaneous
  Country: SK (occurrence: SK)
  Receive Date: 20161209
  Receipt Date: 20161209
  Transmission Date: 20170207
  Serious: Yes (Other)
  Sender: FDA-Public Use
  Company Number: SK-ROCHE-1860568

PATIENT
  Age: 15 Year
  Sex: Female

DRUGS (3)
  1. RITUXIMAB [Suspect]
     Active Substance: RITUXIMAB
     Indication: IMMUNODEFICIENCY COMMON VARIABLE
     Route: 065
  2. IMMUNOGLOBULIN [Concomitant]
     Active Substance: HUMAN IMMUNOGLOBULIN G
     Indication: IMMUNODEFICIENCY COMMON VARIABLE
     Dosage: FACILITATED
     Route: 058
  3. IMMUNOGLOBULIN [Concomitant]
     Active Substance: HUMAN IMMUNOGLOBULIN G
     Route: 042

REACTIONS (4)
  - Hypogammaglobulinaemia [Unknown]
  - Genitourinary tract infection [Unknown]
  - Respiratory tract infection [Unknown]
  - Immunodeficiency [Unknown]
